FAERS Safety Report 21770896 (Version 5)
Quarter: 2023Q4

REPORT INFORMATION
  Report Type: Spontaneous
  Country: US (occurrence: US)
  Receive Date: 20221223
  Receipt Date: 20231219
  Transmission Date: 20240109
  Serious: No
  Sender: FDA-Public Use
  Company Number: US-BRISTOL-MYERS SQUIBB COMPANY-2022-158006

PATIENT
  Age: 70 Year
  Sex: Female
  Weight: 92.08 kg

DRUGS (3)
  1. REVLIMID [Suspect]
     Active Substance: LENALIDOMIDE
     Indication: Plasma cell myeloma
     Dosage: FREQ - 2W, 1W OFF
     Route: 048
  2. REVLIMID [Suspect]
     Active Substance: LENALIDOMIDE
     Indication: Plasma cell myeloma in remission
     Route: 048
  3. REVLIMID [Suspect]
     Active Substance: LENALIDOMIDE
     Route: 048

REACTIONS (12)
  - Off label use [Unknown]
  - Product distribution issue [Unknown]
  - Fatigue [Unknown]
  - Dizziness postural [Unknown]
  - Oral pain [Unknown]
  - Constipation [Unknown]
  - Diarrhoea [Unknown]
  - Pain in extremity [Unknown]
  - Oral herpes [Unknown]
  - Lymphadenopathy [Recovered/Resolved]
  - Rash [Unknown]
  - Dysgeusia [Unknown]
